FAERS Safety Report 6987135-4 (Version None)
Quarter: 2010Q3

REPORT INFORMATION
  Report Type: 
  Country: None (occurrence: None)
  Receive Date: 20100916
  Receipt Date: 20100908
  Transmission Date: 20110219
  Serious: Yes (Hospitalization)
  Sender: FDA-Public Use
  Company Number: FR-SANOFI-AVENTIS-2010SA054018

PATIENT
  Age: 37 Year
  Sex: Male
  Weight: 62 kg

DRUGS (9)
  1. KAYEXALATE [Suspect]
     Route: 048
     Dates: start: 20091125
  2. DECTANCYL [Suspect]
     Indication: PRODUCT USED FOR UNKNOWN INDICATION
     Route: 048
     Dates: start: 20091122, end: 20091122
  3. ENALAPRIL MALEATE [Suspect]
     Route: 048
     Dates: start: 20091121, end: 20091125
  4. ESIDRIX [Suspect]
     Route: 048
     Dates: start: 20091122
  5. VITAMIN B1 AND B6 [Suspect]
     Indication: PRODUCT USED FOR UNKNOWN INDICATION
     Route: 048
     Dates: start: 20091121
  6. BISOPROLOL FUMARATE [Suspect]
     Route: 048
     Dates: start: 20091121
  7. NIDREL [Concomitant]
     Route: 048
     Dates: start: 20091120, end: 20091121
  8. MEDIATENSYL [Concomitant]
     Route: 048
     Dates: start: 20091120, end: 20091121
  9. AMLODIPINE [Concomitant]
     Indication: PRODUCT USED FOR UNKNOWN INDICATION
     Dates: start: 20091101

REACTIONS (1)
  - ANGIOEDEMA [None]
